FAERS Safety Report 17659851 (Version 1)
Quarter: 2020Q2

REPORT INFORMATION
  Report Type: Other
  Country: CA (occurrence: CA)
  Receive Date: 20200413
  Receipt Date: 20200413
  Transmission Date: 20200713
  Serious: Yes (Hospitalization, Other)
  Sender: FDA-Public Use
  Company Number: CA-APOTEX-2020AP009778

PATIENT
  Age: 9 Year
  Sex: Male

DRUGS (13)
  1. CYTARABINE. [Concomitant]
     Active Substance: CYTARABINE
     Indication: FAMILIAL HAEMOPHAGOCYTIC LYMPHOHISTIOCYTOSIS
     Dosage: UNK
     Route: 065
  2. BUSULFAN. [Suspect]
     Active Substance: BUSULFAN
     Indication: STEM CELL TRANSPLANT
  3. ALEMTUZUMAB [Suspect]
     Active Substance: ALEMTUZUMAB
     Indication: BONE MARROW CONDITIONING REGIMEN
     Dosage: UNK
     Route: 065
  4. CYCLOPHOSPHAMIDE. [Suspect]
     Active Substance: CYCLOPHOSPHAMIDE
     Indication: STEM CELL TRANSPLANT
  5. FLUDARABINE PHOSPHATE. [Suspect]
     Active Substance: FLUDARABINE PHOSPHATE
     Indication: STEM CELL TRANSPLANT
  6. ALEMTUZUMAB [Suspect]
     Active Substance: ALEMTUZUMAB
     Indication: STEM CELL TRANSPLANT
  7. CYCLOPHOSPHAMIDE. [Suspect]
     Active Substance: CYCLOPHOSPHAMIDE
     Indication: BONE MARROW CONDITIONING REGIMEN
     Dosage: UNK
     Route: 065
  8. HYDROCORTISONE. [Concomitant]
     Active Substance: HYDROCORTISONE
     Indication: FAMILIAL HAEMOPHAGOCYTIC LYMPHOHISTIOCYTOSIS
     Dosage: UNK
     Route: 065
  9. ALEMTUZUMAB [Suspect]
     Active Substance: ALEMTUZUMAB
     Indication: FAMILIAL HAEMOPHAGOCYTIC LYMPHOHISTIOCYTOSIS
     Dosage: 2.5 MG/KG, UNK
     Route: 065
  10. METHOTREXATE. [Concomitant]
     Active Substance: METHOTREXATE
     Indication: FAMILIAL HAEMOPHAGOCYTIC LYMPHOHISTIOCYTOSIS
     Dosage: UNK
     Route: 065
  11. BUSULFAN. [Suspect]
     Active Substance: BUSULFAN
     Indication: BONE MARROW CONDITIONING REGIMEN
     Dosage: UNK
     Route: 065
  12. FLUDARABINE PHOSPHATE. [Suspect]
     Active Substance: FLUDARABINE PHOSPHATE
     Indication: BONE MARROW CONDITIONING REGIMEN
     Dosage: UNK
     Route: 065
  13. METHYLPREDNISOLONE                 /00049603/ [Concomitant]
     Active Substance: METHYLPREDNISOLONE
     Indication: FAMILIAL HAEMOPHAGOCYTIC LYMPHOHISTIOCYTOSIS
     Dosage: UNK
     Route: 065

REACTIONS (5)
  - Herpes simplex [Unknown]
  - Off label use [Unknown]
  - Respiratory disorder [Unknown]
  - Mucosal inflammation [Unknown]
  - Respiratory failure [Unknown]
